FAERS Safety Report 7433124-5 (Version None)
Quarter: 2011Q2

REPORT INFORMATION
  Report Type: 
  Country: None (occurrence: None)
  Receive Date: 20110422
  Receipt Date: 20110413
  Transmission Date: 20111010
  Serious: Yes (Hospitalization, Other)
  Sender: FDA-Public Use
  Company Number: CA-ABBOTT-11P-028-0708070-00

PATIENT
  Sex: Female

DRUGS (3)
  1. HUMIRA [Suspect]
     Indication: CROHN'S DISEASE
     Route: 058
     Dates: start: 20080709, end: 20110110
  2. HUMIRA [Suspect]
     Dates: start: 20110204
  3. PREVACID [Concomitant]
     Indication: GASTROOESOPHAGEAL REFLUX DISEASE
     Dates: start: 20040101

REACTIONS (3)
  - INTESTINAL STENOSIS [None]
  - POSTOPERATIVE WOUND INFECTION [None]
  - ABDOMINAL ADHESIONS [None]
